FAERS Safety Report 21946181 (Version 2)
Quarter: 2023Q1

REPORT INFORMATION
  Report Type: Spontaneous
  Country: JP (occurrence: JP)
  Receive Date: 20230202
  Receipt Date: 20230222
  Transmission Date: 20230418
  Serious: Yes (Hospitalization)
  Sender: FDA-Public Use
  Company Number: JP-TEVA-2023-JP-2851678

PATIENT
  Age: 22 Year
  Sex: Male

DRUGS (8)
  1. URSODIOL [Interacting]
     Active Substance: URSODIOL
     Indication: Cholestasis
     Dosage: 150 MILLIGRAM DAILY; ONCE DAILY
     Route: 065
  2. NEORAL [Interacting]
     Active Substance: CYCLOSPORINE
     Indication: Aplastic anaemia
     Dosage: 5 MG/KG DAILY; MICROEMULSION, ONCE DAILY
     Route: 048
  3. ITRACONAZOLE [Interacting]
     Active Substance: ITRACONAZOLE
     Indication: Product used for unknown indication
     Dosage: 200 MILLIGRAM DAILY; ONCE DAILY
     Route: 065
  4. ITRACONAZOLE [Interacting]
     Active Substance: ITRACONAZOLE
     Dosage: 100 MILLIGRAM DAILY; ONCE DAILY
     Route: 065
  5. LAPINE T-LYMPHOCYTE IMMUNE GLOBULIN [Concomitant]
     Active Substance: LAPINE T-LYMPHOCYTE IMMUNE GLOBULIN
     Indication: Aplastic anaemia
     Route: 065
  6. TAZOBACTAM [Concomitant]
     Active Substance: TAZOBACTAM
     Indication: Product used for unknown indication
     Route: 065
  7. PIPERACILLIN [Concomitant]
     Active Substance: PIPERACILLIN
     Indication: Product used for unknown indication
     Route: 065
  8. ACYCLOVIR [Concomitant]
     Active Substance: ACYCLOVIR
     Indication: Product used for unknown indication
     Route: 048

REACTIONS (3)
  - Cholestasis [Recovering/Resolving]
  - Immunosuppressant drug level increased [Recovering/Resolving]
  - Drug interaction [Unknown]
